FAERS Safety Report 5691085-3 (Version None)
Quarter: 2008Q2

REPORT INFORMATION
  Report Type: 
  Country: None (occurrence: None)
  Receive Date: 20080401
  Receipt Date: 20080326
  Transmission Date: 20081010
  Serious: Yes (Other)
  Sender: FDA-Public Use
  Company Number: DE-BOEHRINGER INGELHEIM GMBH, GERMANY-2008-DE-01792DE

PATIENT
  Sex: Male
  Weight: 90 kg

DRUGS (2)
  1. CLONIDINE HCL [Suspect]
     Route: 048
  2. TRAMADOL 100 RETARD [Suspect]
     Route: 048

REACTIONS (4)
  - DRUG ABUSE [None]
  - OVERDOSE [None]
  - SOMNOLENCE [None]
  - SUICIDE ATTEMPT [None]
